FAERS Safety Report 22127809 (Version 1)
Quarter: 2023Q1

REPORT INFORMATION
  Report Type: Spontaneous
  Country: US (occurrence: US)
  Receive Date: 20230323
  Receipt Date: 20230323
  Transmission Date: 20230418
  Serious: Yes (Other)
  Sender: FDA-Public Use
  Company Number: US-NATCOUSA-2023-NATCOUSA-000137

PATIENT
  Age: 56 Year
  Sex: Female
  Weight: 74.39 kg

DRUGS (2)
  1. LETROZOLE [Suspect]
     Active Substance: LETROZOLE
     Indication: Breast cancer
  2. PANTOPRAZOLE [Concomitant]
     Active Substance: PANTOPRAZOLE
     Indication: Dyspepsia

REACTIONS (2)
  - Blindness unilateral [Unknown]
  - Retinal vascular occlusion [Unknown]

NARRATIVE: CASE EVENT DATE: 20221214
